FAERS Safety Report 15145617 (Version 1)
Quarter: 2018Q3

REPORT INFORMATION
  Report Type: Report from Study
  Country: PL (occurrence: PL)
  Receive Date: 20180713
  Receipt Date: 20180713
  Transmission Date: 20181010
  Serious: Yes (Other)
  Sender: FDA-Public Use
  Company Number: PL-TEVA-2018-PL-924705

PATIENT

DRUGS (2)
  1. FLUCONAZOLE. [Suspect]
     Active Substance: FLUCONAZOLE
     Route: 065
  2. HALOPERIDOL. [Interacting]
     Active Substance: HALOPERIDOL
     Route: 065

REACTIONS (4)
  - Sedation complication [Unknown]
  - Akathisia [Unknown]
  - Rhabdomyolysis [Unknown]
  - Drug interaction [Unknown]
